FAERS Safety Report 8922868 (Version 1)
Quarter: 2012Q4

REPORT INFORMATION
  Report Type: 
  Country: JP (occurrence: JP)
  Receive Date: 20121123
  Receipt Date: 20121123
  Transmission Date: 20130627
  Serious: Yes (Hospitalization, Other)
  Sender: FDA-Public Use
  Company Number: JP-ROCHE-1159276

PATIENT
  Age: 60 Year
  Sex: Female

DRUGS (6)
  1. RIBAVIRIN [Suspect]
     Indication: HEPATITIS C
     Route: 065
  2. PEG-INTERFERON ALFA 2A [Suspect]
     Indication: HEPATITIS C
     Route: 065
  3. PEGINTERFERON ALFA-2B [Suspect]
     Indication: HEPATITIS C
     Route: 065
  4. INTERFERON ALFA-2B [Suspect]
     Indication: HEPATITIS C
     Route: 065
  5. INTERFERON ALFACON-1 [Suspect]
     Indication: HEPATITIS C
     Route: 065
  6. INTERFERON ALFA [Suspect]
     Indication: HEPATITIS C
     Route: 065

REACTIONS (2)
  - Type 1 diabetes mellitus [Recovering/Resolving]
  - Neuromyelitis optica [Recovering/Resolving]
